FAERS Safety Report 9490121 (Version 1)
Quarter: 2013Q3

REPORT INFORMATION
  Report Type: Spontaneous
  Country: NL (occurrence: NL)
  Receive Date: 20130830
  Receipt Date: 20130830
  Transmission Date: 20140515
  Serious: Yes (Death)
  Sender: FDA-Public Use
  Company Number: NL-AMGEN-NLDSP2013060397

PATIENT
  Age: 75 Year
  Sex: Male

DRUGS (14)
  1. XGEVA [Suspect]
     Indication: BONE DISORDER
     Dosage: 120 UNK, Q4WK
     Route: 065
  2. CALCI CHEW D3 [Concomitant]
     Dosage: 500 MG, UNK
  3. FOLIUMZUUR [Concomitant]
     Dosage: 0.5 MG, UNK
  4. HYDROCOBAMINE [Concomitant]
     Dosage: 500 MUL/ML, UNK
  5. PARACETAMOL [Concomitant]
     Dosage: 500 MG, UNK
  6. FORLAX                             /00754501/ [Concomitant]
  7. BUMETANIDE [Concomitant]
     Dosage: 2 MG, UNK
  8. OMEPRAZ [Concomitant]
     Dosage: 20 MG, UNK
  9. DEXAMETHASON                       /00016001/ [Concomitant]
     Dosage: 1.5 MG, UNK
  10. AMITRIPTYLINE HCL [Concomitant]
     Dosage: 25 MG, UNK
  11. ABSTRAL [Concomitant]
     Dosage: 200 MUG, UNK
     Route: 060
  12. FENTANYL MATRIX [Concomitant]
     Dosage: 50 MUG, UNK
  13. SIMVASTATINE [Concomitant]
     Dosage: 20 MG, UNK
  14. ENALAPRIL MALEATE [Concomitant]
     Dosage: 20 MG, UNK

REACTIONS (1)
  - Death [Fatal]
